FAERS Safety Report 4619992-0 (Version None)
Quarter: 2005Q1

REPORT INFORMATION
  Report Type: 
  Country: None (occurrence: None)
  Receive Date: 20050324
  Receipt Date: 20050310
  Transmission Date: 20050727
  Serious: Yes (Other)
  Sender: FDA-Public Use
  Company Number: 200501994

PATIENT
  Age: 17 Year
  Sex: Male

DRUGS (3)
  1. BOTOX [Suspect]
     Indication: MUSCLE SPASTICITY
     Dosage: 100 UNITS ONCE IM
     Route: 030
     Dates: start: 20040701, end: 20040701
  2. BOTOX [Suspect]
     Indication: MUSCLE SPASTICITY
     Dosage: 70 UNITS ONCE IM
     Route: 030
     Dates: start: 20041001, end: 20041001
  3. GARDENALE [Concomitant]

REACTIONS (2)
  - HYPERTENSION [None]
  - VENTRICULAR HYPERTROPHY [None]
